FAERS Safety Report 12683151 (Version 1)
Quarter: 2016Q3

REPORT INFORMATION
  Report Type: Spontaneous
  Country: US (occurrence: None)
  Receive Date: 20160824
  Receipt Date: 20160824
  Transmission Date: 20161109
  Serious: Yes (Other)
  Sender: FDA-Public Use
  Company Number: None

PATIENT
  Age: 50 Year
  Sex: Female
  Weight: 58.51 kg

DRUGS (6)
  1. D-MANNOSE [Concomitant]
  2. MULTI VITAMIN [Concomitant]
     Active Substance: VITAMINS
  3. CALCIUM MAGNESIUM [Concomitant]
     Active Substance: CALCIUM\MAGNESIUM
  4. GENERIC CIPROFLOXACIN HCL, 500 MG [Suspect]
     Active Substance: CIPROFLOXACIN HYDROCHLORIDE
     Indication: CYSTITIS
     Route: 048
     Dates: start: 20160819, end: 20160822
  5. VITAMIN B COMPLEX [Concomitant]
     Active Substance: CYANOCOBALAMIN\DEXPANTHENOL\NIACINAMIDE\PYRIDOXINE HYDROCHLORIDE\RIBOFLAVIN 5^-PHOSPHATE SODIUM\THIAMINE HYDROCHLORIDE\VITAMIN B COMPLEX
  6. DGL [Concomitant]

REACTIONS (3)
  - Headache [None]
  - Malaise [None]
  - Myalgia [None]

NARRATIVE: CASE EVENT DATE: 20160822
